FAERS Safety Report 9380014 (Version 4)
Quarter: 2013Q3

REPORT INFORMATION
  Report Type: Spontaneous
  Country: US (occurrence: US)
  Receive Date: 20130702
  Receipt Date: 20130809
  Transmission Date: 20140515
  Serious: No
  Sender: FDA-Public Use
  Company Number: US-PFIZER INC-2013192543

PATIENT
  Sex: Female

DRUGS (1)
  1. LEVOXYL [Suspect]
     Dosage: 88 UG, 1X/DAY
     Route: 048

REACTIONS (2)
  - Cardiac disorder [Unknown]
  - Heart rate irregular [Recovered/Resolved]
